FAERS Safety Report 9053614 (Version 1)
Quarter: 2013Q1

REPORT INFORMATION
  Report Type: Spontaneous
  Country: US (occurrence: None)
  Receive Date: 20130201
  Receipt Date: 20130201
  Transmission Date: 20140127
  Serious: Yes (Death)
  Sender: FDA-Public Use
  Company Number: None

PATIENT
  Age: 67 Year
  Sex: Female

DRUGS (4)
  1. TRIAMCINOLONE [Suspect]
     Indication: DIABETIC RETINOPATHY
     Dosage: 1 EVERY 4-6 WEEKS INTRAOCULAR
     Route: 014
     Dates: start: 20120103, end: 20120907
  2. TRIAMCINOLONE [Suspect]
     Indication: MACULAR OEDEMA
     Dosage: 1 EVERY 4-6 WEEKS INTRAOCULAR
     Route: 014
     Dates: start: 20120103, end: 20120907
  3. LUCENTIS [Suspect]
     Indication: DIABETIC RETINOPATHY
     Dosage: 1 EVERY 4 WEEKS INTRAOCULAR
     Route: 014
     Dates: start: 20121026, end: 20121207
  4. LUCENTIS [Suspect]
     Indication: MACULAR OEDEMA
     Dosage: 1 EVERY 4 WEEKS INTRAOCULAR
     Route: 014
     Dates: start: 20121026, end: 20121207

REACTIONS (1)
  - Death [None]
